FAERS Safety Report 19004230 (Version 3)
Quarter: 2021Q1

REPORT INFORMATION
  Report Type: Spontaneous
  Country: US (occurrence: US)
  Receive Date: 20210313
  Receipt Date: 20210330
  Transmission Date: 20210420
  Serious: No
  Sender: FDA-Public Use
  Company Number: US-BIOGEN-2021BI00989350

PATIENT
  Age: 66 Year
  Sex: Female

DRUGS (1)
  1. PLEGRIDY [Suspect]
     Active Substance: PEGINTERFERON BETA-1A
     Indication: MULTIPLE SCLEROSIS
     Route: 065
     Dates: start: 20210305

REACTIONS (5)
  - Injury associated with device [Unknown]
  - Injection site haemorrhage [Unknown]
  - Multiple sclerosis [Unknown]
  - Injection site pain [Unknown]
  - Overdose [Unknown]

NARRATIVE: CASE EVENT DATE: 20210305
